FAERS Safety Report 8217330-8 (Version None)
Quarter: 2012Q1

REPORT INFORMATION
  Report Type: 
  Country: None (occurrence: None)
  Receive Date: 20120315
  Receipt Date: 20120308
  Transmission Date: 20120608
  Serious: Yes (Other)
  Sender: FDA-Public Use
  Company Number: ADR-2012-00385

PATIENT
  Sex: Male

DRUGS (2)
  1. BACLOFEN [Suspect]
     Indication: MUSCLE SPASTICITY
     Dosage: 134.8 MCG/DAY SIMPLE CONTINUOUS
  2. BACLOFEN [Suspect]
     Indication: CEREBRAL PALSY
     Dosage: 134.8 MCG/DAY SIMPLE CONTINUOUS

REACTIONS (3)
  - SEROMA [None]
  - DISEASE RECURRENCE [None]
  - HYPERSENSITIVITY [None]
